FAERS Safety Report 12271946 (Version 1)
Quarter: 2016Q2

REPORT INFORMATION
  Report Type: Spontaneous
  Country: US (occurrence: US)
  Receive Date: 20160415
  Receipt Date: 20160415
  Transmission Date: 20160815
  Serious: No
  Sender: FDA-Public Use
  Company Number: US-FERRINGPH-2015FE00153

PATIENT
  Age: 87 Year
  Sex: Male

DRUGS (5)
  1. PROTONEX [Concomitant]
  2. TURMERIC                           /01079601/ [Concomitant]
     Active Substance: TURMERIC
  3. FIRMAGON [Suspect]
     Active Substance: DEGARELIX ACETATE
     Dosage: 240 MG, ONCE/SINGLE;INJECTION
     Route: 058
     Dates: start: 20150113
  4. UROXATRAL [Suspect]
     Active Substance: ALFUZOSIN HYDROCHLORIDE
  5. PROLIA [Concomitant]
     Active Substance: DENOSUMAB

REACTIONS (1)
  - Rash macular [Unknown]

NARRATIVE: CASE EVENT DATE: 20150119
